FAERS Safety Report 14367943 (Version 1)
Quarter: 2018Q1

REPORT INFORMATION
  Report Type: Spontaneous
  Country: US (occurrence: US)
  Receive Date: 20180109
  Receipt Date: 20180109
  Transmission Date: 20180509
  Serious: No
  Sender: FDA-Public Use
  Company Number: US-ALLERGAN-1735270US

PATIENT
  Age: 55 Year
  Sex: Male

DRUGS (1)
  1. DALVANCE [Suspect]
     Active Substance: DALBAVANCIN
     Indication: SKIN INFECTION
     Dosage: 1500 MG, SINGLE
     Route: 042

REACTIONS (3)
  - Confusional state [Unknown]
  - Chills [Unknown]
  - Hypertension [Unknown]
